FAERS Safety Report 12037246 (Version 1)
Quarter: 2016Q1

REPORT INFORMATION
  Report Type: Spontaneous
  Country: SE (occurrence: SE)
  Receive Date: 20160208
  Receipt Date: 20160208
  Transmission Date: 20160526
  Serious: Yes (Hospitalization, Congenital Anomaly, Other)
  Sender: FDA-Public Use
  Company Number: SE-009507513-1602SWE002933

PATIENT
  Age: 1 Day
  Sex: Male
  Weight: .72 kg

DRUGS (1)
  1. NEXPLANON [Suspect]
     Active Substance: ETONOGESTREL
     Dosage: UNK
     Route: 064
     Dates: start: 201505, end: 2015

REACTIONS (6)
  - Premature baby [Unknown]
  - Foetal exposure during pregnancy [Recovered/Resolved]
  - Blood count abnormal [Recovering/Resolving]
  - Abdominal pain upper [Recovering/Resolving]
  - Pulmonary malformation [Recovering/Resolving]
  - Low birth weight baby [Unknown]

NARRATIVE: CASE EVENT DATE: 20151106
